FAERS Safety Report 11367726 (Version 1)
Quarter: 2015Q3

REPORT INFORMATION
  Report Type: Spontaneous
  Country: US (occurrence: US)
  Receive Date: 20150811
  Receipt Date: 20150811
  Transmission Date: 20151125
  Serious: No
  Sender: FDA-Public Use
  Company Number: US-ELI_LILLY_AND_COMPANY-US201207007888

PATIENT
  Age: 41 Year
  Sex: Male
  Weight: 222.68 kg

DRUGS (3)
  1. AXIRON [Suspect]
     Active Substance: TESTOSTERONE
     Indication: BLOOD TESTOSTERONE DECREASED
     Dosage: 60 MG, QD
     Route: 061
     Dates: start: 20120627
  2. AXIRON [Suspect]
     Active Substance: TESTOSTERONE
     Dosage: 30 MG (ONE DAY, ALTERNATING), QD
     Route: 061
     Dates: start: 201208
  3. AXIRON [Suspect]
     Active Substance: TESTOSTERONE
     Dosage: 60 MG (THE SECOND DAY, ALTERNETING), QD
     Route: 061

REACTIONS (3)
  - Application site irritation [Unknown]
  - Laboratory test abnormal [Unknown]
  - Blood testosterone decreased [Unknown]

NARRATIVE: CASE EVENT DATE: 201206
